FAERS Safety Report 10518368 (Version 3)
Quarter: 2016Q3

REPORT INFORMATION
  Report Type: Report from Study
  Country: US (occurrence: US)
  Receive Date: 20141015
  Receipt Date: 20160811
  Transmission Date: 20161109
  Serious: Yes (Hospitalization, Other)
  Sender: FDA-Public Use
  Company Number: US-ROCHE-698050

PATIENT
  Age: 61 Year
  Sex: Female
  Weight: 69.4 kg

DRUGS (3)
  1. ERLOTINIB [Suspect]
     Active Substance: ERLOTINIB
     Indication: COLON CANCER METASTATIC
     Route: 048
     Dates: start: 20100322, end: 20100331
  2. GEMCITABINE [Suspect]
     Active Substance: GEMCITABINE\GEMCITABINE HYDROCHLORIDE
     Indication: COLON CANCER METASTATIC
     Dosage: FORM: INJECTION FOR INFUSION, ON DAY 1, 8, 15, 22, 29, 36 AND 43
     Route: 042
     Dates: start: 20100322, end: 20100331
  3. VISMODEGIB [Suspect]
     Active Substance: VISMODEGIB
     Indication: COLON CANCER METASTATIC
     Route: 048
     Dates: start: 20100322, end: 20100331

REACTIONS (7)
  - White blood cell count decreased [Unknown]
  - Anaemia [Unknown]
  - Platelet count decreased [Unknown]
  - Cystitis [Unknown]
  - Neutrophil count decreased [Unknown]
  - Nausea [Unknown]
  - Thrombocytopenia [Recovering/Resolving]

NARRATIVE: CASE EVENT DATE: 20100331
